FAERS Safety Report 6571645-8 (Version None)
Quarter: 2010Q1

REPORT INFORMATION
  Report Type: 
  Country: None (occurrence: None)
  Receive Date: 20100205
  Receipt Date: 20100125
  Transmission Date: 20100710
  Serious: Yes (Other)
  Sender: FDA-Public Use
  Company Number: PHEH2009US16546

PATIENT
  Sex: Female
  Weight: 45.351 kg

DRUGS (1)
  1. EXELON [Suspect]
     Indication: DEMENTIA ALZHEIMER'S TYPE
     Dosage: 4.6 MG, UNK
     Route: 062
     Dates: start: 20091001, end: 20091001

REACTIONS (4)
  - AGGRESSION [None]
  - DELUSION OF GRANDEUR [None]
  - HYPERVIGILANCE [None]
  - PARANOIA [None]
